FAERS Safety Report 7768825-2 (Version None)
Quarter: 2011Q3

REPORT INFORMATION
  Report Type: 
  Country: None (occurrence: None)
  Receive Date: 20110922
  Receipt Date: 20110120
  Transmission Date: 20111222
  Serious: No
  Sender: FDA-Public Use
  Company Number: US-ASTRAZENECA-2011SE00197

PATIENT
  Age: 55 Year
  Sex: Female

DRUGS (7)
  1. EFFEXOR [Concomitant]
  2. OXYCODONE HCL [Concomitant]
  3. SEROQUEL [Suspect]
     Indication: RESTLESSNESS
     Route: 048
     Dates: start: 20080101, end: 20110101
  4. FLEXERIL [Concomitant]
  5. REQUIP [Concomitant]
  6. METOPROLOL TARTRATE [Concomitant]
  7. CELEBREX [Concomitant]

REACTIONS (4)
  - ARTHRITIS [None]
  - DRUG DOSE OMISSION [None]
  - FIBROMYALGIA [None]
  - RESTLESSNESS [None]
